FAERS Safety Report 8806616 (Version 2)
Quarter: 2012Q4

REPORT INFORMATION
  Report Type: 
  Country: CH (occurrence: CH)
  Receive Date: 20120925
  Receipt Date: 20121112
  Transmission Date: 20130627
  Serious: Yes (Disabling)
  Sender: FDA-Public Use
  Company Number: CH-BAYER-2012-099184

PATIENT
  Age: 78 Year
  Sex: Female
  Weight: 68 kg

DRUGS (1)
  1. AVALOX [Suspect]
     Indication: PNEUMONIA
     Dosage: Daily dose 400 mg
     Route: 048
     Dates: start: 20120713, end: 20120725

REACTIONS (1)
  - Anosmia [Not Recovered/Not Resolved]
